FAERS Safety Report 8221316-7 (Version None)
Quarter: 2012Q1

REPORT INFORMATION
  Report Type: 
  Country: None (occurrence: None)
  Receive Date: 20120320
  Receipt Date: 20120315
  Transmission Date: 20120608
  Serious: Yes (Death, Other)
  Sender: FDA-Public Use
  Company Number: PHHY2012MY022925

PATIENT
  Sex: Female

DRUGS (2)
  1. GLEEVEC [Suspect]
     Dosage: 400 MG, DAILY
     Route: 065
     Dates: start: 20110801
  2. GLEEVEC [Suspect]
     Indication: GASTROINTESTINAL STROMAL TUMOUR
     Dosage: 400 MG, DAILY
     Route: 065
     Dates: start: 20050119, end: 20100823

REACTIONS (3)
  - DEATH [None]
  - NEOPLASM PROGRESSION [None]
  - NEOPLASM MALIGNANT [None]
